FAERS Safety Report 20153131 (Version 1)
Quarter: 2021Q4

REPORT INFORMATION
  Report Type: Spontaneous
  Country: US (occurrence: US)
  Receive Date: 20211206
  Receipt Date: 20211206
  Transmission Date: 20220303
  Serious: Yes (Other)
  Sender: FDA-Public Use
  Company Number: US-SUNOVION-2021SUN004524

PATIENT
  Age: 87 Year
  Sex: Female

DRUGS (2)
  1. LONHALA MAGNAIR [Suspect]
     Active Substance: GLYCOPYRROLATE
     Dosage: 25 ?G
     Route: 055
  2. OXYGEN [Concomitant]
     Active Substance: OXYGEN
     Dosage: UNK, QD

REACTIONS (3)
  - Macular degeneration [Unknown]
  - Diabetes mellitus [Unknown]
  - Visual impairment [Unknown]
